FAERS Safety Report 9749408 (Version 1)
Quarter: 2013Q4

REPORT INFORMATION
  Report Type: Spontaneous
  Country: US (occurrence: US)
  Receive Date: 20131212
  Receipt Date: 20131212
  Transmission Date: 20140711
  Serious: No
  Sender: FDA-Public Use
  Company Number: US-BIOGENIDEC-2013BI093289

PATIENT
  Age: 58 Year
  Sex: Female
  Weight: 63 kg

DRUGS (10)
  1. TECFIDERA [Suspect]
     Indication: PRODUCT USED FOR UNKNOWN INDICATION
     Route: 048
  2. TECFIDERA [Suspect]
     Indication: PRODUCT USED FOR UNKNOWN INDICATION
     Route: 048
  3. PREMARIN [Concomitant]
  4. SOMA [Concomitant]
  5. SUDAFED CR [Concomitant]
  6. ZYRTEC [Concomitant]
  7. FLORINAL [Concomitant]
  8. TRANXENE T [Concomitant]
  9. PREDNISONE [Concomitant]
  10. BABY ASPIRIN [Concomitant]

REACTIONS (2)
  - Flushing [Unknown]
  - Rash [Unknown]
